FAERS Safety Report 4803355-9 (Version None)
Quarter: 2005Q4

REPORT INFORMATION
  Report Type: 
  Country: None (occurrence: None)
  Receive Date: 20051013
  Receipt Date: 20050929
  Transmission Date: 20060501
  Serious: Yes (Death, Hospitalization)
  Sender: FDA-Public Use
  Company Number: FLX20050010

PATIENT
  Sex: Male

DRUGS (2)
  1. FLUOXETINE HCL [Suspect]
     Indication: DEPRESSION
     Dosage: 12G ONCE PO
     Route: 048
     Dates: start: 20040101, end: 20040101
  2. RISPERIDONE [Concomitant]

REACTIONS (11)
  - ANXIETY [None]
  - BLOOD GLUCOSE INCREASED [None]
  - BRADYCARDIA [None]
  - CARDIAC ARREST [None]
  - ELECTROCARDIOGRAM ABNORMAL [None]
  - GRAND MAL CONVULSION [None]
  - HYPERTENSION [None]
  - OVERDOSE [None]
  - SEROTONIN SYNDROME [None]
  - SINUS TACHYCARDIA [None]
  - VENTRICULAR FIBRILLATION [None]
